FAERS Safety Report 19288011 (Version 2)
Quarter: 2021Q2

REPORT INFORMATION
  Report Type: Report from Study
  Country: US (occurrence: US)
  Receive Date: 20210522
  Receipt Date: 20210628
  Transmission Date: 20210717
  Serious: No
  Sender: FDA-Public Use
  Company Number: NVSC2021US110224

PATIENT
  Sex: Female

DRUGS (1)
  1. TABRECTA [Suspect]
     Active Substance: CAPMATINIB
     Indication: PRODUCT USED FOR UNKNOWN INDICATION
     Dosage: UNK
     Route: 048

REACTIONS (10)
  - Flatulence [Unknown]
  - Abdominal distension [Unknown]
  - Blood creatinine increased [Unknown]
  - Hyperphagia [Unknown]
  - Infection [Unknown]
  - Dyspnoea [Unknown]
  - Bronchitis [Unknown]
  - Joint swelling [Unknown]
  - Muscle spasms [Unknown]
  - Peripheral swelling [Unknown]
